FAERS Safety Report 8204985-7 (Version None)
Quarter: 2012Q1

REPORT INFORMATION
  Report Type: 
  Country: None (occurrence: None)
  Receive Date: 20120313
  Receipt Date: 20120305
  Transmission Date: 20120608
  Serious: Yes (Hospitalization)
  Sender: FDA-Public Use
  Company Number: DE-UCBSA-051259

PATIENT
  Age: 71 Year
  Sex: Male
  Weight: 75 kg

DRUGS (18)
  1. FOSINOPRIL SODIUM [Concomitant]
     Dates: start: 20120101, end: 20120218
  2. FOSINOPRIL SODIUM [Concomitant]
     Indication: CARDIOVASCULAR DISORDER
     Dosage: 10 MG TAB:OTHER1/2
     Dates: start: 20120219
  3. METOPROLOL TARTRATE AND HYDROCHLOROTHIAZIDE [Concomitant]
     Indication: HYPERTENSION
     Dosage: 95 MG TAB TAKEN AS:OTHER 1/2-0-1/2
     Dates: start: 20120211
  4. NEUPRO [Suspect]
     Indication: PARKINSON'S DISEASE
     Route: 062
     Dates: start: 20110824
  5. GLIBENCLAMID SANDOZ [Concomitant]
     Indication: DIABETES MELLITUS
     Dosage: FREQ: OTHER 1/2
     Dates: start: 20101213
  6. NEUPRO [Suspect]
     Route: 062
     Dates: start: 20110317, end: 20110823
  7. LYRICA [Concomitant]
     Dates: start: 20050622, end: 20120101
  8. NEUPRO [Suspect]
     Route: 062
     Dates: start: 20101213, end: 20110316
  9. LYRICA [Concomitant]
     Dates: start: 20050203, end: 20120101
  10. CLOPIDOGREL RATIOPH [Concomitant]
     Indication: PROPHYLAXIS
     Dates: start: 20100525
  11. LEVODOPA RATIO COMP [Suspect]
     Indication: PARKINSON'S DISEASE
     Dosage: 100/25 MG
     Dates: start: 20100526, end: 20120228
  12. LEVODOPA RATIO COMP [Suspect]
     Dosage: 100/25 MG.
     Dates: start: 20050224, end: 20051110
  13. PK MERZ [Suspect]
     Indication: PARKINSON'S DISEASE
     Dates: start: 20030730
  14. LYRICA [Concomitant]
     Indication: POLYNEUROPATHY
     Dates: start: 20120101
  15. PIRACETAM NEURAX GRAN [Concomitant]
     Indication: DEMYELINATION
     Dates: start: 20051110, end: 20120101
  16. FOSINOPRIL SODIUM [Concomitant]
     Dosage: FREQ: OTHER 1/2
     Dates: start: 20101213, end: 20110101
  17. LEVODOPA RATIO COMP [Suspect]
     Dosage: 100/25MG OTHER  1; - ; 1
     Dates: start: 20051111, end: 20100525
  18. METOPROLOL TARTRATE AND HYDROCHLOROTHIAZIDE [Concomitant]
     Dosage: 95 MG TAB TAKEN AS 1-0-1/2-0
     Dates: start: 20120101, end: 20120210

REACTIONS (2)
  - ISCHAEMIC STROKE [None]
  - PARKINSON'S DISEASE [None]
